FAERS Safety Report 16660691 (Version 1)
Quarter: 2019Q3

REPORT INFORMATION
  Report Type: Spontaneous
  Country: US (occurrence: US)
  Receive Date: 20190801
  Receipt Date: 20190801
  Transmission Date: 20191004
  Serious: Yes (Disabling)
  Sender: FDA-Public Use
  Company Number: None

PATIENT
  Age: 4 Year
  Sex: Male
  Weight: 10.8 kg

DRUGS (1)
  1. MIRALAX [Suspect]
     Active Substance: POLYETHYLENE GLYCOL 3350
     Indication: CONSTIPATION
     Route: 048

REACTIONS (9)
  - Sensory disturbance [None]
  - Anxiety [None]
  - Obsessive-compulsive disorder [None]
  - Developmental delay [None]
  - Growth retardation [None]
  - Aggression [None]
  - Speech disorder [None]
  - Motor developmental delay [None]
  - Autism spectrum disorder [None]

NARRATIVE: CASE EVENT DATE: 20190801
